FAERS Safety Report 10662409 (Version 2)
Quarter: 2014Q4

REPORT INFORMATION
  Report Type: Spontaneous
  Country: VN (occurrence: VN)
  Receive Date: 20141218
  Receipt Date: 20141218
  Transmission Date: 20150529
  Serious: Yes (Hospitalization)
  Sender: FDA-Public Use
  Company Number: VN-PFIZER INC-2014340893

PATIENT
  Age: 82 Year
  Sex: Female

DRUGS (1)
  1. CELEBREX [Suspect]
     Active Substance: CELECOXIB
     Indication: ANALGESIC THERAPY
     Dosage: 2 CAPSULES
     Route: 048

REACTIONS (2)
  - Shock haemorrhagic [Unknown]
  - Gastrointestinal haemorrhage [Unknown]
